FAERS Safety Report 8091596-X (Version None)
Quarter: 2012Q1

REPORT INFORMATION
  Report Type: 
  Country: None (occurrence: None)
  Receive Date: 20120131
  Receipt Date: 20120125
  Transmission Date: 20120608
  Serious: Yes (Hospitalization)
  Sender: FDA-Public Use
  Company Number: US-PFIZER INC-2012021660

PATIENT
  Sex: Female
  Weight: 100 kg

DRUGS (8)
  1. COREG [Concomitant]
     Indication: HYPERTENSION
     Dosage: 25 MG, 2X/DAY
  2. NORVASC [Suspect]
     Indication: HYPERTENSION
     Dosage: 5 MG, DAILY
     Dates: start: 20090101
  3. NOVOLOG MIX 70/30 [Concomitant]
     Indication: DIABETES MELLITUS
     Dosage: 70/30MG, 2X/DAY
  4. HYDRALAZINE [Concomitant]
     Indication: HYPERTENSION
     Dosage: 100 MG, 3X/DAY
  5. AMLODIPINE [Concomitant]
     Indication: HYPERTENSION
     Dosage: 5 MG, DAILY
  6. ISOSORBIDE [Concomitant]
     Indication: HYPERTENSION
     Dosage: 30 MG, DAILY
  7. NEURONTIN [Suspect]
     Indication: NEUROPATHY PERIPHERAL
     Dosage: 600 MG, 2X/DAY
     Dates: start: 20090101
  8. CLONIDINE [Concomitant]
     Indication: HYPERTENSION
     Dosage: 2 MG, 2X/DAY

REACTIONS (2)
  - VOMITING [None]
  - DIARRHOEA [None]
